FAERS Safety Report 26005838 (Version 1)
Quarter: 2025Q4

REPORT INFORMATION
  Report Type: Spontaneous
  Country: US (occurrence: None)
  Receive Date: 20251105
  Receipt Date: 20251105
  Transmission Date: 20260118
  Serious: Yes (Hospitalization)
  Sender: FDA-CTU
  Company Number: None

PATIENT
  Age: 60 Year
  Sex: Female

DRUGS (1)
  1. VENCLEXTA [Suspect]
     Active Substance: VENETOCLAX
     Indication: Product used for unknown indication
     Dosage: OTHER FREQUENCY : QD FOR 14 DAYS AND 14DAYS OFF;?
     Route: 048

REACTIONS (3)
  - Pneumonia [None]
  - Platelet count decreased [None]
  - Therapy interrupted [None]
